FAERS Safety Report 5301725-6 (Version None)
Quarter: 2007Q1

REPORT INFORMATION
  Report Type: 
  Country: None (occurrence: None)
  Receive Date: 20070208
  Receipt Date: 20061213
  Transmission Date: 20070707
  Serious: Yes (Other)
  Sender: FDA-Public Use
  Company Number: PROG00205002750

PATIENT
  Sex: Female

DRUGS (14)
  1. PROMETRIUM [Suspect]
     Indication: HORMONE REPLACEMENT THERAPY
     Dosage: DAILY ORAL
     Route: 048
  2. PROMETRIUM [Suspect]
     Indication: MENOPAUSAL SYMPTOMS
     Dosage: DAILY ORAL
     Route: 048
  3. ESTRATEST [Suspect]
     Indication: HORMONE REPLACEMENT THERAPY
     Dosage: DAILY ORAL
     Route: 048
  4. ESTRATEST [Suspect]
     Indication: MENOPAUSAL SYMPTOMS
     Dosage: DAILY ORAL
     Route: 048
  5. ESTROGEN (ESTROGEN) [Suspect]
     Indication: HORMONE REPLACEMENT THERAPY
     Dosage: DAILY
  6. ESTROGEN (ESTROGEN) [Suspect]
     Indication: MENOPAUSAL SYMPTOMS
     Dosage: DAILY
  7. CENESTIN [Suspect]
     Indication: HORMONE REPLACEMENT THERAPY
     Dosage: DAILY
  8. ESTRING [Suspect]
     Indication: HORMONE REPLACEMENT THERAPY
     Dosage: DAILY
  9. ESTRING [Suspect]
     Indication: MENOPAUSAL SYMPTOMS
     Dosage: DAILY
  10. VAGIFEM [Suspect]
     Indication: HORMONE REPLACEMENT THERAPY
     Dosage: DAILY
  11. VAGIFEM [Suspect]
     Indication: MENOPAUSAL SYMPTOMS
     Dosage: DAILY
  12. FEMRING [Suspect]
     Indication: HORMONE REPLACEMENT THERAPY
     Dosage: DAILY
  13. FEMRING [Suspect]
     Indication: MENOPAUSAL SYMPTOMS
     Dosage: DAILY
  14. MENEST [Suspect]
     Indication: HORMONE REPLACEMENT THERAPY
     Dosage: DAILY

REACTIONS (1)
  - BREAST CANCER [None]
